FAERS Safety Report 4585209-9 (Version None)
Quarter: 2005Q1

REPORT INFORMATION
  Report Type: 
  Country: None (occurrence: None)
  Receive Date: 20050217
  Receipt Date: 20050121
  Transmission Date: 20050727
  Serious: No
  Sender: FDA-Public Use
  Company Number: US-GLAXOSMITHKLINE-A0541750A

PATIENT
  Age: 42 Year
  Sex: Female

DRUGS (5)
  1. WELLBUTRIN XL [Suspect]
     Indication: DEPRESSION
     Dosage: 300MG PER DAY
     Route: 048
     Dates: start: 20050112
  2. LITHOBID [Concomitant]
  3. TOPAMAX [Concomitant]
  4. SEROQUEL [Concomitant]
  5. KLONOPIN [Concomitant]

REACTIONS (5)
  - ANOREXIA [None]
  - DRY MOUTH [None]
  - HANGOVER [None]
  - HYPOTENSION [None]
  - NAUSEA [None]
